FAERS Safety Report 13355324 (Version 1)
Quarter: 2017Q1

REPORT INFORMATION
  Report Type: Report from Study
  Country: JP (occurrence: JP)
  Receive Date: 20170321
  Receipt Date: 20170321
  Transmission Date: 20170429
  Serious: Yes (Death, Other)
  Sender: FDA-Public Use
  Company Number: JP-ACTELION-A-CH2017-151255

PATIENT
  Age: 82 Year
  Sex: Female

DRUGS (10)
  1. ADCIRCA [Concomitant]
     Active Substance: TADALAFIL
  2. FUROSEMIDE. [Concomitant]
     Active Substance: FUROSEMIDE
  3. VOLIBRIS [Concomitant]
     Active Substance: AMBRISENTAN
  4. OXYGEN. [Concomitant]
     Active Substance: OXYGEN
  5. MEDROL [Concomitant]
     Active Substance: METHYLPREDNISOLONE
  6. NEXIUM [Concomitant]
     Active Substance: ESOMEPRAZOLE MAGNESIUM
  7. OPSUMIT [Suspect]
     Active Substance: MACITENTAN
     Indication: PULMONARY ARTERIAL HYPERTENSION
     Dosage: 10 MG, QD
     Route: 048
     Dates: start: 20160602, end: 20160704
  8. BAKTAR [Concomitant]
     Active Substance: SULFAMETHOXAZOLE\TRIMETHOPRIM
  9. ALDACTONE A [Concomitant]
     Active Substance: SPIRONOLACTONE
  10. EVAMYL [Concomitant]
     Active Substance: LORMETAZEPAM

REACTIONS (4)
  - Interstitial lung disease [Fatal]
  - Pulmonary arterial hypertension [Fatal]
  - Urinary tract infection [Recovering/Resolving]
  - Anaemia [Recovering/Resolving]

NARRATIVE: CASE EVENT DATE: 20160603
